FAERS Safety Report 20168239 (Version 1)
Quarter: 2021Q4

REPORT INFORMATION
  Report Type: Spontaneous
  Country: NL (occurrence: NL)
  Receive Date: 20211210
  Receipt Date: 20211210
  Transmission Date: 20220303
  Serious: Yes (Hospitalization)
  Sender: FDA-Public Use
  Company Number: None

PATIENT
  Age: 52 Year
  Sex: Female
  Weight: 61 kg

DRUGS (4)
  1. PANTOPRAZOLE SODIUM [Suspect]
     Active Substance: PANTOPRAZOLE SODIUM
     Indication: Peptic ulcer
     Dosage: 40 MILLIGRAM DAILY;  PANTOPRAZOL TABLET MSR
     Dates: start: 2015, end: 20211118
  2. LEVOTHYROXINE [Concomitant]
     Active Substance: LEVOTHYROXINE
     Dosage: 100 UG (MICROGRAM) , THERAPY START DATE AND END DATE : ASKU
  3. ALBUTEROL [Concomitant]
     Active Substance: ALBUTEROL
     Dosage: AEROSOL, 100 UG/DOSE (MICROGRAMS PER DOSE) , THERAPY START DATE AND END DATE : ASKU , REDIHALER 100M
  4. TIOTROPIUM / SPIRIVA [Concomitant]
     Dosage: 18 UG (MICROGRAMS) , THERAPY START DATE AND END DATE : ASKU  , INHALATION CAPSULE

REACTIONS (2)
  - Hypomagnesaemia [Recovering/Resolving]
  - Hypocalcaemia [Recovering/Resolving]

NARRATIVE: CASE EVENT DATE: 20211104
